FAERS Safety Report 4342833-6 (Version None)
Quarter: 2004Q2

REPORT INFORMATION
  Report Type: 
  Country: None (occurrence: None)
  Receive Date: 20040415
  Receipt Date: 20040402
  Transmission Date: 20050107
  Serious: Yes (Other)
  Sender: FDA-Public Use
  Company Number: 2004022777

PATIENT

DRUGS (11)
  1. NEURONTIN [Suspect]
     Indication: FIBROMYALGIA
     Dosage: 100 MG (DAILY AT BEDTIME), ORAL
     Route: 048
     Dates: end: 20040328
  2. SERTRALINE HCL [Concomitant]
  3. DIAZEPAM [Concomitant]
  4. DIMETICONE, ACTIVATED (SIMETICONE) [Concomitant]
  5. IRBESARTAN (IREBESARTAN) [Concomitant]
  6. ATENOLOL [Concomitant]
  7. LEVOTHYROXINE SODIUM [Concomitant]
  8. ACETYLSALICYLIC ACID SRT [Concomitant]
  9. ZOLPIDEM TARTRATE [Concomitant]
  10. MECLOZINE HYDROCHLORIDE (MECLOZINE HYDROCHLORIDE) [Concomitant]
  11. HYOSCYAMINE SULFATE (HYSCYAMINE SULFATE) [Concomitant]

REACTIONS (9)
  - ABDOMINAL DISTENSION [None]
  - BURNING SENSATION [None]
  - COLITIS [None]
  - CONDITION AGGRAVATED [None]
  - EYE DISORDER [None]
  - EYE PAIN [None]
  - FEELING ABNORMAL [None]
  - GASTRITIS EROSIVE [None]
  - HOT FLUSH [None]
